FAERS Safety Report 10385756 (Version 4)
Quarter: 2015Q1

REPORT INFORMATION
  Report Type: Report from Study
  Country: JP (occurrence: JP)
  Receive Date: 20140814
  Receipt Date: 20150226
  Transmission Date: 20150720
  Serious: Yes (Disabling, Other)
  Sender: FDA-Public Use
  Company Number: JP-MERCK-1408JPN008139

PATIENT
  Age: 73 Year
  Sex: Female
  Weight: 45 kg

DRUGS (9)
  1. SIMEPREVIR [Suspect]
     Active Substance: SIMEPREVIR
     Indication: CHRONIC HEPATITIS C
     Dosage: 100 MG, 1 IN 1 DAY
     Route: 048
     Dates: start: 20140402, end: 20140625
  2. PEGINTRON [Suspect]
     Active Substance: PEGINTERFERON ALFA-2B
     Indication: CHRONIC HEPATITIS C
     Dosage: 1.5 UG/KG, 1 IN 1 WEEK
     Route: 058
     Dates: start: 20140402, end: 20140618
  3. REBETOL [Suspect]
     Active Substance: RIBAVIRIN
     Indication: CHRONIC HEPATITIS C
     Dosage: 600 MG, 1 IN 1 DAY
     Route: 048
     Dates: start: 20140402, end: 20140506
  4. JUZEN-TAIHO-TO [Concomitant]
     Active Substance: UNSPECIFIED INGREDIENT
     Indication: PROPHYLAXIS
     Dosage: 7.5 G, 1 IN 1 DAY
     Route: 048
     Dates: start: 20140402
  5. LANTUS [Concomitant]
     Active Substance: INSULIN GLARGINE
     Indication: DIABETES MELLITUS
     Dosage: 8 IU, 1 IN 1 DAY
  6. REBETOL [Suspect]
     Active Substance: RIBAVIRIN
     Dosage: 400 MG, 1 IN 1 DAY
     Route: 048
     Dates: start: 20140507, end: 20140513
  7. REBETOL [Suspect]
     Active Substance: RIBAVIRIN
     Dosage: 200 MG, 1 IN 1 DAY
     Route: 048
     Dates: start: 20140514, end: 20140626
  8. MUCOSTA [Concomitant]
     Active Substance: REBAMIPIDE
     Indication: PROPHYLAXIS
     Dosage: 300 MG, 1 IN 1 DAY
     Route: 048
     Dates: start: 20140402
  9. LOXOPROFEN [Concomitant]
     Active Substance: LOXOPROFEN
     Indication: PROPHYLAXIS
     Dosage: 60 MG, 1 IN 1 AS NECESSARY
     Route: 048
     Dates: start: 20140402

REACTIONS (3)
  - Optic neuritis [Not Recovered/Not Resolved]
  - Anaemia [Recovered/Resolved]
  - Platelet count decreased [Recovering/Resolving]

NARRATIVE: CASE EVENT DATE: 20140402
